FAERS Safety Report 9454343 (Version 1)
Quarter: 2013Q3

REPORT INFORMATION
  Report Type: Spontaneous
  Country: US (occurrence: US)
  Receive Date: 20130812
  Receipt Date: 20130812
  Transmission Date: 20140515
  Serious: Yes (Other)
  Sender: FDA-Public Use
  Company Number: PHEH2013US017008

PATIENT
  Age: 72 Year
  Sex: Male

DRUGS (7)
  1. TEKTURNA [Suspect]
     Dosage: 150 MG
  2. SIMVASTATIN [Concomitant]
     Dosage: 80 MG
  3. LASIX [Concomitant]
     Dosage: 20 MG
  4. ENALAPRIL [Concomitant]
     Dosage: 20 MG
  5. DIOVAN [Concomitant]
     Dosage: 320 MG
  6. GLIPIZIDE [Concomitant]
     Dosage: 10 MG
  7. COREG [Concomitant]
     Dosage: 25 MG, BID

REACTIONS (11)
  - Cerebral atrophy [Unknown]
  - Cerebrovascular accident [Unknown]
  - Coronary artery disease [Unknown]
  - Diabetes mellitus [Unknown]
  - Muscular weakness [Unknown]
  - Speech disorder [Unknown]
  - Hemiparesis [Unknown]
  - Cataract [Unknown]
  - Renal failure chronic [Not Recovered/Not Resolved]
  - Hypertension [Unknown]
  - Oedema peripheral [Unknown]
